FAERS Safety Report 12347528 (Version 1)
Quarter: 2016Q2

REPORT INFORMATION
  Report Type: Spontaneous
  Country: CH (occurrence: CH)
  Receive Date: 20160509
  Receipt Date: 20160509
  Transmission Date: 20160815
  Serious: Yes (Hospitalization)
  Sender: FDA-Public Use
  Company Number: CH-UNICHEM LABORATORIES LIMITED-UCM201605-000097

PATIENT
  Age: 57 Year
  Sex: Male

DRUGS (14)
  1. TOPIRAMATE. [Suspect]
     Active Substance: TOPIRAMATE
  2. ALLOPURINOL. [Concomitant]
     Active Substance: ALLOPURINOL
  3. METFORMIN [Concomitant]
     Active Substance: METFORMIN HYDROCHLORIDE
  4. TORASEMIDE [Concomitant]
     Active Substance: TORSEMIDE
  5. IBUPROFEN. [Suspect]
     Active Substance: IBUPROFEN
  6. TOPIRAMATE. [Suspect]
     Active Substance: TOPIRAMATE
     Indication: ESSENTIAL TREMOR
  7. MEFENAMIC ACID. [Suspect]
     Active Substance: MEFENAMIC ACID
  8. ESOMEPRAZOLE [Concomitant]
     Active Substance: ESOMEPRAZOLE
  9. TOPIRAMATE. [Suspect]
     Active Substance: TOPIRAMATE
  10. CITALOPRAM [Concomitant]
     Active Substance: CITALOPRAM HYDROBROMIDE
  11. LOSARTAN. [Suspect]
     Active Substance: LOSARTAN
  12. HYDROCHLOROTHIAZIDE. [Suspect]
     Active Substance: HYDROCHLOROTHIAZIDE
  13. CLONAZEPAM. [Concomitant]
     Active Substance: CLONAZEPAM
  14. PROPRANOLOL [Concomitant]
     Active Substance: PROPRANOLOL\PROPRANOLOL HYDROCHLORIDE

REACTIONS (5)
  - Hypohidrosis [Unknown]
  - Drug level increased [Unknown]
  - Acute kidney injury [Unknown]
  - Multiple organ dysfunction syndrome [Unknown]
  - Heat stroke [Recovering/Resolving]
